FAERS Safety Report 19785079 (Version 1)
Quarter: 2021Q3

REPORT INFORMATION
  Report Type: Spontaneous
  Country: US (occurrence: US)
  Receive Date: 20210903
  Receipt Date: 20210903
  Transmission Date: 20211014
  Serious: Yes (Disabling)
  Sender: FDA-Public Use
  Company Number: None

PATIENT
  Age: 44 Year
  Sex: Male
  Weight: 72 kg

DRUGS (10)
  1. PREDNISONE. [Suspect]
     Active Substance: PREDNISONE
     Indication: ADVERSE DRUG REACTION
     Dosage: ?          QUANTITY:3 CAPSULE(S);?
     Route: 048
     Dates: start: 20210805, end: 20210810
  2. VITAMIN C [Concomitant]
     Active Substance: ASCORBIC ACID
  3. L?TYROSINE [Concomitant]
     Active Substance: TYROSINE
  4. CIPRO [Suspect]
     Active Substance: CIPROFLOXACIN HYDROCHLORIDE
     Indication: TESTICULAR PAIN
     Dosage: ?          QUANTITY:30 CAPSULE(S);?
     Route: 048
     Dates: start: 20210730, end: 20210731
  5. WHEEL CHAIR [Concomitant]
  6. MUSHROOM COMPLEX [Concomitant]
     Active Substance: HERBALS
  7. MAGNESIUM [Concomitant]
     Active Substance: MAGNESIUM
  8. L?CARNITINE [Concomitant]
     Active Substance: LEVOCARNITINE
  9. ZINC. [Concomitant]
     Active Substance: ZINC
  10. QUERCETIN [Concomitant]
     Active Substance: QUERCETIN

REACTIONS (39)
  - Suicidal ideation [None]
  - Skin burning sensation [None]
  - Muscle twitching [None]
  - Joint noise [None]
  - Muscle atrophy [None]
  - Headache [None]
  - Pain in extremity [None]
  - Erythema [None]
  - Weight decreased [None]
  - Bedridden [None]
  - Vertigo [None]
  - Mental impairment [None]
  - Insomnia [None]
  - Neuralgia [None]
  - Swelling [None]
  - General physical health deterioration [None]
  - Documented hypersensitivity to administered product [None]
  - Arthralgia [None]
  - Depression [None]
  - Dyspnoea [None]
  - Pruritus [None]
  - Fatigue [None]
  - Dry mouth [None]
  - Lymphadenopathy [None]
  - Emotional disorder [None]
  - Off label use [None]
  - Eye pain [None]
  - Palpitations [None]
  - Anxiety [None]
  - Vision blurred [None]
  - Tendon pain [None]
  - Pelvic pain [None]
  - Pharyngeal swelling [None]
  - Panic attack [None]
  - Paraesthesia [None]
  - Mental disorder [None]
  - Ear pain [None]
  - Chest pain [None]
  - Food intolerance [None]

NARRATIVE: CASE EVENT DATE: 20210805
